FAERS Safety Report 7536769-7 (Version None)
Quarter: 2011Q2

REPORT INFORMATION
  Report Type: 
  Country: None (occurrence: None)
  Receive Date: 20110608
  Receipt Date: 20110608
  Transmission Date: 20111010
  Serious: Yes (Other)
  Sender: FDA-Public Use
  Company Number: None

PATIENT
  Age: 51 Year
  Sex: Female
  Weight: 108.8633 kg

DRUGS (1)
  1. ACTOS [Suspect]
     Indication: DIABETES MELLITUS
     Dosage: 1 X DAILY PO
     Route: 048
     Dates: start: 20110520, end: 20110529

REACTIONS (2)
  - HYPERTENSION [None]
  - INFLUENZA LIKE ILLNESS [None]
